FAERS Safety Report 21157379 (Version 1)
Quarter: 2022Q3

REPORT INFORMATION
  Report Type: Spontaneous
  Country: US (occurrence: US)
  Receive Date: 20220801
  Receipt Date: 20220801
  Transmission Date: 20221027
  Serious: Yes (Other)
  Sender: FDA-Public Use
  Company Number: US-AMGEN-USASP2022127330

PATIENT

DRUGS (1)
  1. PROCRIT [Suspect]
     Active Substance: ERYTHROPOIETIN
     Indication: Product used for unknown indication
     Dosage: 60000 INTERNATIONAL UNIT
     Route: 058

REACTIONS (1)
  - Red blood cell count decreased [Unknown]

NARRATIVE: CASE EVENT DATE: 20220721
